FAERS Safety Report 9374866 (Version 1)
Quarter: 2013Q2

REPORT INFORMATION
  Report Type: Report from Study
  Country: GB (occurrence: GB)
  Receive Date: 20130628
  Receipt Date: 20130628
  Transmission Date: 20140414
  Serious: Yes (Hospitalization, Other)
  Sender: FDA-Public Use
  Company Number: GB-ROCHE-1242235

PATIENT
  Age: 83 Year
  Sex: Female

DRUGS (7)
  1. LUCENTIS [Suspect]
     Indication: PRODUCT USED FOR UNKNOWN INDICATION
     Route: 050
     Dates: start: 20110921
  2. INDAPAMIDE [Concomitant]
  3. ATENOLOL [Concomitant]
  4. OMEPRAZOLE [Concomitant]
  5. ASPIRIN [Concomitant]
  6. DOXAZOSIN [Concomitant]
  7. LEVOTHYROXINE [Concomitant]

REACTIONS (5)
  - Circulatory collapse [Recovered/Resolved]
  - Presyncope [Unknown]
  - Joint dislocation [Unknown]
  - Blood pressure fluctuation [Unknown]
  - Dizziness [Unknown]
